FAERS Safety Report 20696291 (Version 1)
Quarter: 2022Q2

REPORT INFORMATION
  Report Type: Spontaneous
  Country: US (occurrence: None)
  Receive Date: 20220410
  Receipt Date: 20220410
  Transmission Date: 20220721
  Serious: Yes (Death, Hospitalization)
  Sender: FDA-Public Use
  Company Number: None

PATIENT
  Age: 63 Year
  Sex: Male
  Weight: 97.4 kg

DRUGS (1)
  1. RITUXIMAB [Suspect]
     Active Substance: RITUXIMAB
     Dates: end: 20211230

REACTIONS (12)
  - COVID-19 pneumonia [None]
  - Acute respiratory failure [None]
  - Acute respiratory distress syndrome [None]
  - Pneumomediastinum [None]
  - Pneumothorax [None]
  - Pulmonary embolism [None]
  - Deep vein thrombosis [None]
  - Agonal respiration [None]
  - Tachypnoea [None]
  - Cyanosis [None]
  - Unresponsive to stimuli [None]
  - Eye movement disorder [None]

NARRATIVE: CASE EVENT DATE: 20220404
